FAERS Safety Report 8511022-3 (Version None)
Quarter: 2012Q3

REPORT INFORMATION
  Report Type: 
  Country: None (occurrence: None)
  Receive Date: 20120716
  Receipt Date: 20120703
  Transmission Date: 20120928
  Serious: No
  Sender: FDA-Public Use
  Company Number: US-GENZYME-MOZO-1000610

PATIENT
  Sex: Female
  Weight: 92.1 kg

DRUGS (12)
  1. MOZOBIL [Suspect]
     Dosage: 52000 MCG, UNK
     Route: 042
     Dates: start: 20111110, end: 20111110
  2. NEUPOGEN [Concomitant]
     Indication: ACUTE MYELOID LEUKAEMIA
     Dosage: 921 MCG, QD
     Route: 058
     Dates: start: 20111107, end: 20111114
  3. MITOXANTRONE [Concomitant]
     Indication: ACUTE MYELOID LEUKAEMIA
     Dosage: 15 MG, QD
     Route: 042
     Dates: start: 20111110, end: 20111114
  4. CYTARABINE [Concomitant]
     Indication: ACUTE MYELOID LEUKAEMIA
     Dosage: 1910 MG, QD
     Route: 042
     Dates: start: 20111110, end: 20111114
  5. HYDROCHLOROTHIAZIDE [Concomitant]
     Indication: PRODUCT USED FOR UNKNOWN INDICATION
     Dosage: 25 MG, QD
     Route: 065
  6. ETOPOSIDE [Concomitant]
     Indication: ACUTE MYELOID LEUKAEMIA
     Dosage: 191 MG, QD
     Route: 042
     Dates: start: 20111110, end: 20111114
  7. CITALOPRAM HYDROBROMIDE [Concomitant]
     Indication: PRODUCT USED FOR UNKNOWN INDICATION
     Dosage: 20 MG, QD
     Route: 065
  8. MOZOBIL [Suspect]
     Indication: ACUTE MYELOID LEUKAEMIA
     Dosage: 52000 MCG, UNK
     Route: 042
     Dates: start: 20111109, end: 20111109
  9. LISINOPRIL [Concomitant]
     Indication: PRODUCT USED FOR UNKNOWN INDICATION
     Dosage: 5 MG, QD
     Route: 065
  10. MULTI-VITAMIN [Concomitant]
     Indication: PRODUCT USED FOR UNKNOWN INDICATION
     Route: 065
  11. MOZOBIL [Suspect]
     Dosage: 52000 MCG, UNK
     Route: 042
     Dates: start: 20111111, end: 20111114
  12. KLOR-CON [Concomitant]
     Indication: PRODUCT USED FOR UNKNOWN INDICATION
     Dosage: 3 OTHER, QD
     Route: 065

REACTIONS (7)
  - HYPOTENSION [None]
  - MYALGIA [None]
  - HEADACHE [None]
  - VOMITING [None]
  - OEDEMA [None]
  - DIARRHOEA [None]
  - NAUSEA [None]
